FAERS Safety Report 13004298 (Version 2)
Quarter: 2017Q1

REPORT INFORMATION
  Report Type: Spontaneous
  Country: US (occurrence: US)
  Receive Date: 20161206
  Receipt Date: 20170110
  Transmission Date: 20170428
  Serious: No
  Sender: FDA-Public Use
  Company Number: US-MALLINCKRODT-T201602106

PATIENT
  Age: 60 Year
  Sex: Male
  Weight: 100 kg

DRUGS (5)
  1. HYDROMORPHONE [Suspect]
     Active Substance: HYDROMORPHONE
     Indication: PAIN
     Dosage: 1 DF, TID
     Route: 048
     Dates: start: 201607
  2. PREDNISONE. [Concomitant]
     Active Substance: PREDNISONE
  3. FENTANYL TRANSDERMAL SYSTEM [Suspect]
     Active Substance: FENTANYL
     Indication: PAIN
     Dosage: 75 MCG/HR CHANGE PATCH EVERY 72 HOURS
     Route: 062
     Dates: start: 201605
  4. OXYCODONE [Suspect]
     Active Substance: OXYCODONE
     Indication: PAIN
     Dosage: 5 MG, 1 TO 4 TABLET EVERY 4 HOURS
     Route: 048
     Dates: start: 201602
  5. OXYCODONE [Suspect]
     Active Substance: OXYCODONE
     Dosage: 5 MG, 4 TABS EVERY 4 HOURS
     Route: 048
     Dates: start: 201605, end: 201607

REACTIONS (2)
  - Drug ineffective [Not Recovered/Not Resolved]
  - Drug screen positive [Not Recovered/Not Resolved]

NARRATIVE: CASE EVENT DATE: 201602
